FAERS Safety Report 10228506 (Version 1)
Quarter: 2014Q2

REPORT INFORMATION
  Report Type: Spontaneous
  Country: US (occurrence: US)
  Receive Date: 20140610
  Receipt Date: 20140610
  Transmission Date: 20141212
  Serious: No
  Sender: FDA-Public Use
  Company Number: US-PFIZER INC-2014155150

PATIENT
  Sex: Male

DRUGS (3)
  1. BOSULIF [Suspect]
     Indication: CHRONIC MYELOID LEUKAEMIA
     Dosage: UNK
     Route: 048
     Dates: start: 2013
  2. BOSULIF [Suspect]
     Dosage: UNK
     Route: 048
  3. BOSULIF [Suspect]
     Dosage: UNK
     Route: 048
     Dates: end: 201406

REACTIONS (1)
  - Hepatotoxicity [Unknown]
